FAERS Safety Report 24807900 (Version 1)
Quarter: 2025Q1

REPORT INFORMATION
  Report Type: Spontaneous
  Country: US (occurrence: None)
  Receive Date: 20250106
  Receipt Date: 20250106
  Transmission Date: 20250409
  Serious: Yes (Hospitalization)
  Sender: ENCUBE ETHICALS
  Company Number: US-Encube-001545

PATIENT
  Age: 61 Year
  Sex: Female

DRUGS (1)
  1. CLINDAMYCIN PHOSPHATE [Suspect]
     Active Substance: CLINDAMYCIN PHOSPHATE
     Indication: Tooth extraction
     Route: 048

REACTIONS (4)
  - Acute generalised exanthematous pustulosis [Recovering/Resolving]
  - Off label use [Unknown]
  - Leukocytosis [Recovering/Resolving]
  - Transaminases increased [Recovering/Resolving]
